FAERS Safety Report 26203189 (Version 1)
Quarter: 2025Q4

REPORT INFORMATION
  Report Type: Spontaneous
  Country: CN (occurrence: CN)
  Receive Date: 20251226
  Receipt Date: 20251226
  Transmission Date: 20260118
  Serious: Yes (Life-Threatening, Hospitalization, Other)
  Sender: BAYER HEALTHCARE PHARMACEUTICALS INC.
  Company Number: CN-BAYER-2025A169250

PATIENT
  Age: 69 Year
  Sex: Female
  Weight: 60 kg

DRUGS (2)
  1. ULTRAVIST [Suspect]
     Active Substance: IOPROMIDE
     Indication: Computerised tomogram pancreas
     Dosage: 70 ML, ONCE
     Route: 041
     Dates: start: 20251021, end: 20251021
  2. ULTRAVIST [Suspect]
     Active Substance: IOPROMIDE
     Indication: Pancreatic mass

REACTIONS (3)
  - Anaphylactic shock [Recovering/Resolving]
  - Rash erythematous [Recovering/Resolving]
  - Amaurosis [Recovering/Resolving]

NARRATIVE: CASE EVENT DATE: 20251021
